FAERS Safety Report 20716734 (Version 1)
Quarter: 2022Q2

REPORT INFORMATION
  Report Type: Spontaneous
  Country: US (occurrence: US)
  Receive Date: 20220416
  Receipt Date: 20220416
  Transmission Date: 20220721
  Serious: No
  Sender: FDA-Public Use
  Company Number: US-JNJFOC-20220415873

PATIENT
  Age: 9 Decade
  Sex: Male

DRUGS (2)
  1. ZYTIGA [Suspect]
     Active Substance: ABIRATERONE ACETATE
     Indication: Prostate cancer
     Route: 048
     Dates: start: 2020
  2. ZYTIGA [Suspect]
     Active Substance: ABIRATERONE ACETATE
     Dosage: 1500 MG A DAY FOR A WEEK
     Route: 048
     Dates: start: 2020

REACTIONS (2)
  - Prostatic specific antigen increased [Recovering/Resolving]
  - Incorrect dose administered [Unknown]
